FAERS Safety Report 21505235 (Version 1)
Quarter: 2022Q4

REPORT INFORMATION
  Report Type: Spontaneous
  Country: CN (occurrence: None)
  Receive Date: 20221026
  Receipt Date: 20221026
  Transmission Date: 20230112
  Serious: Yes (Other)
  Sender: FDA-Public Use
  Company Number: CN-ROCHE-3206149

PATIENT
  Age: 51 Year
  Sex: Male

DRUGS (5)
  1. ATEZOLIZUMAB [Suspect]
     Active Substance: ATEZOLIZUMAB
     Indication: Small cell lung cancer
     Dosage: FOR 4 CYCLES
     Route: 065
     Dates: start: 20220802
  2. ETOPOSIDE [Concomitant]
     Active Substance: ETOPOSIDE
     Indication: Small cell lung cancer
     Dosage: D1-3, FOR 6 CYCLES
     Dates: start: 20211205, end: 20220327
  3. ETOPOSIDE [Concomitant]
     Active Substance: ETOPOSIDE
     Dosage: FOR 4 CYCLES
     Dates: start: 20220802, end: 20221006
  4. CARBOPLATIN [Concomitant]
     Active Substance: CARBOPLATIN
     Indication: Small cell lung cancer
     Dosage: D1-2, FOR 6 CYCLES
     Dates: start: 20211205, end: 20220327
  5. CARBOPLATIN [Concomitant]
     Active Substance: CARBOPLATIN
     Dosage: FOR 4 CYCLES
     Dates: start: 20220802, end: 20221006

REACTIONS (1)
  - Myelosuppression [Unknown]
